FAERS Safety Report 17443394 (Version 8)
Quarter: 2020Q4

REPORT INFORMATION
  Report Type: Spontaneous
  Country: ES (occurrence: ES)
  Receive Date: 20200221
  Receipt Date: 20201123
  Transmission Date: 20210113
  Serious: Yes (Hospitalization, Other)
  Sender: FDA-Public Use
  Company Number: ES-AUROBINDO-AUR-APL-2020-008385

PATIENT
  Age: 40 Year
  Sex: Male

DRUGS (13)
  1. NAPROXEN. [Interacting]
     Active Substance: NAPROXEN
     Indication: ABDOMINAL PAIN
     Dosage: 1500 MILLIGRAM, ONCE A DAY
     Route: 048
  2. NAPROXEN. [Interacting]
     Active Substance: NAPROXEN
     Indication: ABDOMINAL PAIN
     Dosage: 1.5 MILLIGRAM
     Route: 065
  3. DULOXETINE GASTRO RESISTANT CAPSULES, HARD [Suspect]
     Active Substance: DULOXETINE
     Indication: MAJOR DEPRESSION
     Dosage: 60 MILLIGRAM, ONCE A DAY
     Route: 048
  4. NAPROXEN. [Interacting]
     Active Substance: NAPROXEN
     Indication: PRODUCT USED FOR UNKNOWN INDICATION
     Dosage: UNK
     Route: 065
  5. NAPROXEN 500 MG TABLETS [Interacting]
     Active Substance: NAPROXEN
     Indication: ABDOMINAL PAIN
     Dosage: 1500 MILLIGRAM, ONCE A DAY
     Route: 048
  6. METAMIZOLE [Interacting]
     Active Substance: METAMIZOLE
     Indication: ABDOMINAL PAIN
     Dosage: 1725 MILLIGRAM, ONCE A DAY
     Route: 048
  7. METAMIZOLE [Interacting]
     Active Substance: METAMIZOLE
     Dosage: 1.725 MILLIGRAM, DAILY (1.73 MG, ONCE A DAY)
     Route: 065
  8. NAPROXEN. [Interacting]
     Active Substance: NAPROXEN
     Dosage: 1500 MILLIGRAM, ONCE A DAY
     Route: 065
  9. DULOXETINE GASTRO RESISTANT CAPSULES, HARD [Interacting]
     Active Substance: DULOXETINE
     Indication: DEPRESSION
  10. DESVENLAFAXINE. [Interacting]
     Active Substance: DESVENLAFAXINE
     Indication: MAJOR DEPRESSION
     Dosage: 400 MILLIGRAM, ONCE A DAY
     Route: 065
  11. DESVENLAFAXINE. [Interacting]
     Active Substance: DESVENLAFAXINE
     Indication: DEPRESSION
     Dosage: 400 MILLIGRAM, ONCE A DAY
     Route: 065
  12. METAMIZOLE [Interacting]
     Active Substance: METAMIZOLE
     Dosage: 1750 MILLIGRAM, ONCE A DAY
     Route: 065
  13. NAPROXEN. [Interacting]
     Active Substance: NAPROXEN
     Indication: PRODUCT USED FOR UNKNOWN INDICATION
     Dosage: UNK MILLIGRAM
     Route: 048

REACTIONS (10)
  - Abdominal pain [Recovered/Resolved]
  - Gastrointestinal haemorrhage [Recovered/Resolved]
  - Melaena [Recovered/Resolved]
  - Duodenal ulcer [Recovered/Resolved]
  - Intestinal stenosis [Recovered/Resolved]
  - Constipation [Recovered/Resolved]
  - Upper gastrointestinal haemorrhage [Recovered/Resolved]
  - Drug interaction [Recovered/Resolved]
  - Overdose [Recovered/Resolved]
  - Anaemia [Recovered/Resolved]
